FAERS Safety Report 18219944 (Version 2)
Quarter: 2020Q3

REPORT INFORMATION
  Report Type: Spontaneous
  Country: CN (occurrence: CN)
  Receive Date: 20200901
  Receipt Date: 20200904
  Transmission Date: 20201103
  Serious: Yes (Disabling, Other)
  Sender: FDA-Public Use
  Company Number: CN-BAXTER-2020BAX017524

PATIENT
  Age: 11 Year
  Sex: Male
  Weight: 43 kg

DRUGS (1)
  1. 20% MANNITOL INJECTION [Suspect]
     Active Substance: MANNITOL
     Indication: REDUCTION OF INCREASED INTRACRANIAL PRESSURE
     Route: 041
     Dates: start: 20200804, end: 20200804

REACTIONS (25)
  - Unresponsive to stimuli [Unknown]
  - Cyanosis [Unknown]
  - Skin wrinkling [Unknown]
  - Breath sounds abnormal [Unknown]
  - Mental status changes [Unknown]
  - Lip erythema [Unknown]
  - Central nervous system infection [Unknown]
  - Sepsis [Unknown]
  - Coma [Unknown]
  - Hypokinesia [Unknown]
  - Skin disorder [Unknown]
  - Miosis [Unknown]
  - Rales [Unknown]
  - Peripheral swelling [Unknown]
  - Scab [Unknown]
  - Pyrexia [Unknown]
  - Pharyngeal disorder [Unknown]
  - Condition aggravated [Unknown]
  - Adverse reaction [Recovering/Resolving]
  - General physical health deterioration [Unknown]
  - Intracranial pressure increased [Unknown]
  - Hyperhidrosis [Unknown]
  - Musculoskeletal stiffness [Unknown]
  - Chills [Unknown]
  - Skin discolouration [Recovering/Resolving]

NARRATIVE: CASE EVENT DATE: 202008
